FAERS Safety Report 6427786 (Version 23)
Quarter: 2012Q4

REPORT INFORMATION
  Report Type: 
  Country: US (occurrence: US)
  Receive Date: 20070926
  Receipt Date: 20121012
  Transmission Date: 20130627
  Serious: Yes (Hospitalization, Other)
  Sender: FDA-Public Use
  Company Number: PHEH2007US12631

PATIENT
  Age: 64 Year
  Sex: Female
  Weight: 88.44 kg

DRUGS (75)
  1. CLOTRIMAZOLE [Concomitant]
     Route: 061
  2. PROMETHAZINE HYDROCHLORIDE [Concomitant]
     Dosage: 25 mg
  3. CIPROFLOXACIN HYDROCHLORIDE [Concomitant]
     Dosage: 500 mg
  4. PENICILLIN V-K [Concomitant]
  5. METRONIDAZOLE [Concomitant]
  6. PETROLATUM [Concomitant]
     Route: 061
  7. UNASYN FOR INJECTION [Concomitant]
  8. INSULIN HUMAN INJECTION, ISOPHANE [Concomitant]
  9. CLONIDINE [Concomitant]
  10. HEPARIN-INJEKT [Concomitant]
  11. NIFEDIPINE [Concomitant]
  12. NORMAL SALINE [Concomitant]
  13. PERCOCET [Concomitant]
  14. LEVAQUIN [Concomitant]
     Dosage: 250 mg, QD
  15. MACROBID [Concomitant]
  16. NITROFURAN [Concomitant]
  17. K-DUR [Concomitant]
  18. PAXIL [Concomitant]
  19. AMPICILLIN [Concomitant]
     Route: 048
     Dates: start: 20050907
  20. DIFLUCAN [Concomitant]
     Dates: start: 20050907
  21. OXYBUTYNIN [Concomitant]
     Route: 048
  22. PREMARIN VAGINAL CREAM [Concomitant]
  23. GLIPIZIDE [Concomitant]
  24. ZANTAC [Concomitant]
  25. SIMVASTATIN [Concomitant]
  26. NYSTATIN [Concomitant]
  27. MECLIZINE HYDROCHLORIDE [Concomitant]
  28. TRIAMCINOLONE [Concomitant]
  29. TRAZODONE HYDROCHLORIDE [Concomitant]
  30. FLUCONAZOLE [Concomitant]
  31. ACETAMINOPHEN W/CODEINE [Concomitant]
  32. NISOLDIPINE [Concomitant]
  33. MELPHALAN [Concomitant]
  34. PREDNISONE [Concomitant]
  35. AUGMENTIN                               /SCH/ [Concomitant]
  36. ERYTHROMYCIN [Concomitant]
  37. NASONEX [Concomitant]
  38. ALLEGRA [Concomitant]
  39. PHENERGAN ^AVENTIS PHARMA^ [Concomitant]
  40. HYDROXYZINE [Concomitant]
  41. TYLENOL [Concomitant]
  42. RHINOCORT AQUA [Concomitant]
  43. LORTAB [Concomitant]
  44. AFRIN                              /00070002/ [Concomitant]
  45. IRON [Concomitant]
  46. LUMIGAN [Concomitant]
  47. POTASSIUM [Concomitant]
  48. NORVASC                                 /DEN/ [Concomitant]
  49. PROTONIX ^PHARMACIA^ [Concomitant]
  50. PIROXICAM [Concomitant]
  51. AREDIA [Suspect]
     Indication: MULTIPLE MYELOMA
     Dosage: 90 mg, QMO
     Route: 042
  52. ZOMETA [Suspect]
     Indication: MULTIPLE MYELOMA
     Dosage: 4 mg, QMO
     Route: 042
     Dates: end: 200506
  53. THALIDOMIDE [Concomitant]
     Dosage: 100 mg
     Dates: start: 20060119, end: 200710
  54. HYDROCODONE [Concomitant]
  55. MS CONTIN [Concomitant]
  56. DECADRON [Concomitant]
     Dosage: 40 mg
     Dates: start: 20060119
  57. CATAPRES-TTS [Concomitant]
     Dosage: 2 DF, QW
     Route: 062
     Dates: start: 19951108
  58. CHEMOTHERAPEUTICS NOS [Concomitant]
  59. CALCIUM [Concomitant]
  60. HYDRALAZINE [Concomitant]
  61. PAROXETINE [Concomitant]
  62. POTASSIUM CHLORIDE [Concomitant]
  63. RANITIDINE [Concomitant]
  64. SULAR [Concomitant]
  65. CHLORHEXIDINE GLUCONATE [Concomitant]
  66. DOCUSATE [Concomitant]
     Dosage: 100 mg
  67. SENNOSIDE [Concomitant]
     Dosage: 8.6 mg
  68. ASPIRIN ^BAYER^ [Concomitant]
     Dosage: 325 mg
  69. MILK OF MAGNESIA [Concomitant]
  70. GABAPENTIN [Concomitant]
  71. ACYCLOVIR [Concomitant]
     Dosage: 800 mg
  72. MORPHINE SULFATE [Concomitant]
  73. DEXAMETHASONE [Concomitant]
     Dosage: 4 mg
  74. HEMORRHOIDAL [Concomitant]
  75. LORATADINE [Concomitant]
     Dosage: 10 mg

REACTIONS (100)
  - Pneumonia [Unknown]
  - Pneumonitis [Unknown]
  - Respiratory tract infection [Unknown]
  - Spinal osteoarthritis [Unknown]
  - Intervertebral disc degeneration [Unknown]
  - Spondylolisthesis [Unknown]
  - Intervertebral disc space narrowing [Unknown]
  - Back pain [Unknown]
  - Scoliosis [Unknown]
  - Diverticulum [Unknown]
  - Gastrointestinal haemorrhage [Unknown]
  - Melaena [Unknown]
  - Lipoma [Unknown]
  - Bladder cancer [Unknown]
  - Osteopenia [Unknown]
  - Plasma cell myeloma [Unknown]
  - Urinary tract infection [Unknown]
  - Escherichia infection [Unknown]
  - Haematuria [Recovered/Resolved]
  - Osteonecrosis of jaw [Unknown]
  - Mouth ulceration [Unknown]
  - Pain [Unknown]
  - Deformity [Unknown]
  - Emotional distress [Unknown]
  - Anxiety [Unknown]
  - Hypophagia [Unknown]
  - Life expectancy shortened [Unknown]
  - Anhedonia [Unknown]
  - Gingival disorder [Unknown]
  - Gingival bleeding [Unknown]
  - Toothache [Unknown]
  - Gingivitis [Unknown]
  - Aphthous stomatitis [Unknown]
  - Biopsy gingival [Unknown]
  - Pain in jaw [Unknown]
  - Purulence [Unknown]
  - Tooth disorder [Unknown]
  - Tooth abscess [Unknown]
  - Swelling [Unknown]
  - Oral pain [Unknown]
  - Bone disorder [Unknown]
  - Gingival oedema [Unknown]
  - Erythema [Unknown]
  - Plasmacytosis [Unknown]
  - Pyrexia [Unknown]
  - Chills [Unknown]
  - Hypokalaemia [Unknown]
  - Enterovesical fistula [Unknown]
  - Anaemia [Unknown]
  - Skin odour abnormal [Unknown]
  - Depression [Unknown]
  - Glaucoma [Unknown]
  - Cataract [Unknown]
  - Presbyopia [Unknown]
  - Haematemesis [Unknown]
  - Hepatic cyst [Unknown]
  - Renal cyst [Unknown]
  - Rectal haemorrhage [Unknown]
  - Intestinal obstruction [Unknown]
  - Atelectasis [Unknown]
  - Cardiomegaly [Unknown]
  - Pulmonary vascular disorder [Unknown]
  - Pleural effusion [Unknown]
  - Exostosis [Unknown]
  - Sinus disorder [Unknown]
  - Lymphadenopathy [Unknown]
  - Osteoarthritis [Unknown]
  - Oropharyngeal pain [Unknown]
  - Vaginal infection [Unknown]
  - Mass [Unknown]
  - Sleep disorder [Recovering/Resolving]
  - Hyperlipidaemia [Unknown]
  - Obesity [Unknown]
  - Dyspnoea [Unknown]
  - Asthenia [Unknown]
  - Gait disturbance [Unknown]
  - Walking aid user [Unknown]
  - Oedema peripheral [Recovered/Resolved]
  - Aortic valve incompetence [Unknown]
  - Coronary artery disease [Unknown]
  - Aortic arteriosclerosis [Unknown]
  - Gastrooesophageal reflux disease [Unknown]
  - Skin candida [Unknown]
  - Haemorrhoids [Unknown]
  - Orthopnoea [Unknown]
  - Cystitis [Unknown]
  - Ear infection [Unknown]
  - Dysaesthesia [Unknown]
  - Asthma [Unknown]
  - Aortic disorder [Unknown]
  - Pericardial effusion [Unknown]
  - Bronchitis [Unknown]
  - Ischaemia [Unknown]
  - Haemorrhagic transformation stroke [Unknown]
  - Mastoid disorder [Unknown]
  - Dysphagia [Unknown]
  - Sciatica [Unknown]
  - Varicose vein [Unknown]
  - Diabetic neuropathy [Unknown]
  - Cerebrovascular accident [Unknown]
